FAERS Safety Report 4473095-7 (Version None)
Quarter: 2004Q4

REPORT INFORMATION
  Report Type: 
  Country: None (occurrence: None)
  Receive Date: 20041013
  Receipt Date: 20030120
  Transmission Date: 20050328
  Serious: Yes (Hospitalization, Disabling, Other)
  Sender: FDA-Public Use
  Company Number: PHHO2003IT01117

PATIENT
  Age: 62 Year
  Sex: Female
  Weight: 58 kg

DRUGS (4)
  1. RAD001 [Suspect]
     Indication: RENAL TRANSPLANT
     Dosage: 2 MG / DAY
     Route: 048
     Dates: start: 20020512, end: 20020628
  2. RAD001 [Suspect]
     Dosage: 1.5 MG/DAY
     Route: 048
     Dates: start: 20020629, end: 20020928
  3. SANDIMMUNE [Suspect]
     Indication: RENAL TRANSPLANT
     Dosage: 100 MG/DAY
     Route: 048
     Dates: start: 20020715
  4. DELTACORTENE [Suspect]
     Indication: RENAL TRANSPLANT
     Dosage: 5 MG/DAY
     Dates: start: 20020629

REACTIONS (8)
  - BLOOD CREATININE INCREASED [None]
  - CYTOMEGALOVIRUS INFECTION [None]
  - DIABETES MELLITUS [None]
  - HEADACHE [None]
  - HYPERTENSION [None]
  - KIDNEY TRANSPLANT REJECTION [None]
  - LEUKOPENIA [None]
  - PANCREATITIS [None]
